FAERS Safety Report 7527929-X (Version None)
Quarter: 2011Q2

REPORT INFORMATION
  Report Type: 
  Country: None (occurrence: None)
  Receive Date: 20110607
  Receipt Date: 20030318
  Transmission Date: 20111010
  Serious: Yes (Other)
  Sender: FDA-Public Use
  Company Number: PHFR2003GB01368

PATIENT
  Sex: Male

DRUGS (3)
  1. CLOZARIL [Suspect]
     Indication: SCHIZOPHRENIA
     Dosage: 600MG/DAY
     Route: 048
     Dates: start: 19950110
  2. PREDNISOLONE [Concomitant]
     Indication: RETINAL VASCULITIS
  3. METHOTREXATE [Concomitant]
     Indication: RETINAL VASCULITIS

REACTIONS (3)
  - HODGKIN'S DISEASE [None]
  - NEUTROPHILIA [None]
  - WHITE BLOOD CELL COUNT INCREASED [None]
